FAERS Safety Report 8131077-8 (Version None)
Quarter: 2012Q1

REPORT INFORMATION
  Report Type: 
  Country: None (occurrence: None)
  Receive Date: 20120202
  Receipt Date: 20120131
  Transmission Date: 20120608
  Serious: Yes (Hospitalization)
  Sender: FDA-Public Use
  Company Number: 2012SP005812

PATIENT
  Age: 52 Year
  Sex: Male

DRUGS (5)
  1. VICTRELIS [Suspect]
     Indication: HEPATITIS C
     Dosage: 800 MG; TID; PO
     Route: 048
     Dates: start: 20111119, end: 20120126
  2. RIBAVIRIN [Suspect]
     Indication: HEPATITIS C
  3. ALLOPURINOL [Concomitant]
  4. DIOVAN [Concomitant]
  5. PREVACID [Concomitant]

REACTIONS (2)
  - CHEST PAIN [None]
  - HAEMOGLOBIN DECREASED [None]
